FAERS Safety Report 7386193-5 (Version None)
Quarter: 2011Q1

REPORT INFORMATION
  Report Type: 
  Country: None (occurrence: None)
  Receive Date: 20110323
  Receipt Date: 20110307
  Transmission Date: 20110831
  Serious: Yes (Hospitalization)
  Sender: FDA-Public Use
  Company Number: WAES 1103USA01264

PATIENT
  Age: 35 Year
  Sex: Male

DRUGS (5)
  1. EPIVIR [Concomitant]
  2. VIRACEPT [Concomitant]
  3. ZERIT [Concomitant]
  4. ISENTRESS [Suspect]
     Indication: HIV INFECTION
     Dosage: 800 MG/DAILY
     Route: 048
     Dates: start: 20091229
  5. INTELENCE [Suspect]
     Indication: HIV INFECTION
     Dosage: 400 MG/DAILY
     Route: 048
     Dates: start: 20091229

REACTIONS (1)
  - HAEMORRHAGIC DIATHESIS [None]
